FAERS Safety Report 4397691-0 (Version None)
Quarter: 2004Q3

REPORT INFORMATION
  Report Type: 
  Country: None (occurrence: None)
  Receive Date: 20040713
  Receipt Date: 20040630
  Transmission Date: 20050211
  Serious: Yes (Hospitalization)
  Sender: FDA-Public Use
  Company Number: F01200401073

PATIENT
  Age: 68 Year
  Sex: Female

DRUGS (8)
  1. (OXALIPLATIN) - SOLUTION - 85 MG/M2 [Suspect]
     Indication: COLORECTAL CANCER
     Dosage: 85 MG/M2 Q2W INTRAVENOUS NOS
     Route: 042
     Dates: start: 20040430, end: 20040430
  2. FLUOROURACIL [Suspect]
     Dosage: 500 MG/M2 BOLUS ON D1, D8 AND D15 INTRAVENOUS BOLUS; A FEW MINS
     Route: 040
     Dates: start: 20040430, end: 20040430
  3. LEUCOVORIN CALCIUM [Suspect]
     Dosage: 20 MG/M2 ON D1, D8 AND D15 INTRAVENOUS BOLUS; A FEW MINS
     Route: 040
     Dates: start: 20040430, end: 20040430
  4. AVASTIN [Suspect]
     Dosage: 5 MG/KG OVER 30-90 MINUTES IV INFUSION ON DAY 1 AND 15, Q4W INTRAVENOUS NOS
     Route: 042
     Dates: start: 20040430, end: 20040430
  5. PRILOSEC [Concomitant]
  6. DYAZIDE [Concomitant]
  7. PREMARIN [Concomitant]
  8. NORCO [Concomitant]

REACTIONS (12)
  - COUGH [None]
  - CROHN'S DISEASE [None]
  - DEHYDRATION [None]
  - ENTEROCOLITIS [None]
  - HAEMORRHOIDS [None]
  - ILEAL ULCER [None]
  - ILEUS [None]
  - OESOPHAGEAL ULCER [None]
  - OESOPHAGITIS [None]
  - POST PROCEDURAL COMPLICATION [None]
  - URINARY TRACT INFECTION [None]
  - YERSINIA INFECTION [None]
